FAERS Safety Report 5436049-X (Version None)
Quarter: 2007Q3

REPORT INFORMATION
  Report Type: 
  Country: None (occurrence: None)
  Receive Date: 20070831
  Receipt Date: 20070824
  Transmission Date: 20080115
  Serious: Yes (Hospitalization)
  Sender: FDA-Public Use
  Company Number: NL-AVENTIS-200717765GDDC

PATIENT
  Age: 61 Year
  Sex: Male

DRUGS (6)
  1. DOCETAXEL [Suspect]
     Route: 042
     Dates: start: 20070314, end: 20070727
  2. PREDNISONE [Suspect]
     Route: 048
     Dates: start: 20070314, end: 20070727
  3. DEXAMETHASONE 0.5MG TAB [Concomitant]
     Dosage: DOSE: 3 MG X3
     Dates: start: 20070821
  4. INSULIN [Concomitant]
  5. ZOLADEX [Concomitant]
  6. ACENOCOUMAROL [Concomitant]

REACTIONS (4)
  - METASTASES TO BONE [None]
  - NECROSIS [None]
  - PARALYSIS [None]
  - SPINAL CORD DISORDER [None]
